FAERS Safety Report 9870862 (Version 1)
Quarter: 2014Q1

REPORT INFORMATION
  Report Type: Spontaneous
  Country: US (occurrence: US)
  Receive Date: 20140205
  Receipt Date: 20140205
  Transmission Date: 20141002
  Serious: Yes (Other)
  Sender: FDA-Public Use
  Company Number: US-PFIZER INC-2014033273

PATIENT
  Age: 82 Year
  Sex: Male

DRUGS (8)
  1. PHENYTOIN [Suspect]
     Indication: GRAND MAL CONVULSION
     Dosage: 100 MG, 3X/DAY
  2. PHENYTOIN [Suspect]
     Dosage: UNK
     Route: 051
  3. PHENYTOIN [Suspect]
     Dosage: 500 MG, DAILY
     Route: 048
  4. PHENYTOIN [Suspect]
     Dosage: 600 MG, DAILY
  5. PHENOBARBITAL [Concomitant]
     Indication: GRAND MAL CONVULSION
     Dosage: 32 MG, 3X/DAY
  6. METHYLPREDNISOLONE [Concomitant]
     Dosage: UNK
     Route: 042
  7. PROCAN SR [Concomitant]
     Dosage: 500 MG, 4X/DAY
  8. ACETAMINOPHEN W/CODEINE [Concomitant]
     Indication: HERPES ZOSTER
     Dosage: UNK

REACTIONS (1)
  - Anticonvulsant drug level increased [Recovering/Resolving]
